FAERS Safety Report 24980613 (Version 1)
Quarter: 2025Q1

REPORT INFORMATION
  Report Type: Spontaneous
  Country: US (occurrence: None)
  Receive Date: 20250214
  Receipt Date: 20250214
  Transmission Date: 20250408
  Serious: Yes (Hospitalization)
  Sender: FDA-CTU
  Company Number: None

PATIENT
  Age: 69 Year
  Sex: Male
  Weight: 76.7 kg

DRUGS (19)
  1. PEMBROLIZUMAB [Suspect]
     Active Substance: PEMBROLIZUMAB
     Indication: Squamous cell carcinoma of the oral cavity
     Dosage: FREQUENCY : EVERY THREE WEEKS;?
     Route: 042
     Dates: start: 20241104
  2. AUGMENTIN [Concomitant]
     Active Substance: AMOXICILLIN\CLAVULANATE POTASSIUM
     Dates: start: 20250211
  3. ASPIRIN [Concomitant]
     Active Substance: ASPIRIN
     Dates: start: 20241214
  4. CELEBREX [Concomitant]
     Active Substance: CELECOXIB
     Dates: start: 20250131
  5. docusate (COLACE) [Concomitant]
     Dates: start: 20250101
  6. CYMBALTA [Concomitant]
     Active Substance: DULOXETINE HYDROCHLORIDE
     Dates: start: 20250117
  7. NEXIUM [Concomitant]
     Active Substance: ESOMEPRAZOLE MAGNESIUM
     Dates: start: 20241231
  8. NEURONTIN [Concomitant]
     Active Substance: GABAPENTIN
     Dates: start: 20250117
  9. hydromorphone (DILAUDID) [Concomitant]
     Dates: start: 20250117
  10. hydrophilic petrolatum (AQUAPHOR) ointment [Concomitant]
     Dates: start: 20241231
  11. levothyroxine (SYNTHROID) 100 mcg [Concomitant]
     Dates: start: 20250101
  12. loperamide (IMODIUM) 2 mg [Concomitant]
     Dates: start: 20250205
  13. methocarbamol (ROBAXIN) 500 mg [Concomitant]
     Dates: start: 20250117
  14. multivitamin with iron-minerals (CENTRUM) [Concomitant]
     Dates: start: 20250101
  15. nicotine (NICODERM CQ) 14 mg/24 hr [Concomitant]
     Dates: start: 20250101
  16. nutritional supplements (ISOSOURCE 1.5 CAL LQD) [Concomitant]
     Dates: start: 20241230
  17. saline mist 0.65% nasal spray [Concomitant]
     Dates: start: 20250129
  18. SENEXON-S 8.6-50 mg tablet [Concomitant]
     Dates: start: 20250129
  19. sennosides (SENOKOT) 8.8 mg/5 mL syrup [Concomitant]
     Dates: start: 20241231

REACTIONS (5)
  - Hypoxia [None]
  - Fall [None]
  - Head injury [None]
  - Dyspnoea [None]
  - Dizziness [None]

NARRATIVE: CASE EVENT DATE: 20250214
